FAERS Safety Report 4559808-4 (Version None)
Quarter: 2005Q1

REPORT INFORMATION
  Report Type: 
  Country: None (occurrence: None)
  Receive Date: 20050107
  Receipt Date: 20041130
  Transmission Date: 20050727
  Serious: Yes (Other)
  Sender: FDA-Public Use
  Company Number: ENTC2004-0222

PATIENT
  Age: 72 Year
  Sex: Male

DRUGS (1)
  1. STALEVO 100 [Suspect]
     Dosage: 100 MG/25 MG/200 MG TID, ORAL
     Route: 048
     Dates: start: 20040101, end: 20041020

REACTIONS (3)
  - ANGINA PECTORIS [None]
  - DYSPNOEA [None]
  - NAUSEA [None]
